FAERS Safety Report 10947125 (Version 2)
Quarter: 2015Q2

REPORT INFORMATION
  Report Type: Spontaneous
  Country: US (occurrence: US)
  Receive Date: 20150321
  Receipt Date: 20150525
  Transmission Date: 20150821
  Serious: Yes (Other)
  Sender: FDA-Public Use
  Company Number: US-JNJFOC-20140926523

PATIENT
  Sex: Female
  Weight: 102.51 kg

DRUGS (2)
  1. TOPIRAMATE. [Suspect]
     Active Substance: TOPIRAMATE
     Indication: BIPOLAR II DISORDER
     Route: 048
     Dates: end: 2014
  2. TOPIRAMATE. [Suspect]
     Active Substance: TOPIRAMATE
     Indication: BIPOLAR II DISORDER
     Route: 048
     Dates: start: 201409

REACTIONS (3)
  - Metabolic acidosis [Recovered/Resolved]
  - Adverse event [Unknown]
  - Product use issue [Unknown]
